FAERS Safety Report 16846105 (Version 1)
Quarter: 2019Q3

REPORT INFORMATION
  Report Type: Report from Study
  Country: US (occurrence: US)
  Receive Date: 20190924
  Receipt Date: 20190924
  Transmission Date: 20191005
  Serious: Yes (Hospitalization, Other)
  Sender: FDA-Public Use
  Company Number: US-GILEAD-2019-0429922

PATIENT
  Age: 75 Year
  Sex: Female

DRUGS (18)
  1. DIPHENHYDRAMIN [Concomitant]
     Active Substance: DIPHENHYDRAMINE
  2. RANITIDINE. [Concomitant]
     Active Substance: RANITIDINE
  3. REMODULIN [Concomitant]
     Active Substance: TREPROSTINIL
  4. DULOXETINE. [Concomitant]
     Active Substance: DULOXETINE
  5. AMBRISENTAN [Suspect]
     Active Substance: AMBRISENTAN
     Indication: PULMONARY ARTERIAL HYPERTENSION
     Dosage: 10 MG, QD
     Route: 065
     Dates: start: 20171222
  6. DOXYCYCLIN [DOXYCYCLINE] [Concomitant]
     Active Substance: DOXYCYCLINE
  7. FOLIC ACID. [Concomitant]
     Active Substance: FOLIC ACID
  8. RITUXAN [Concomitant]
     Active Substance: RITUXIMAB
  9. METHOTREXATE. [Concomitant]
     Active Substance: METHOTREXATE
  10. TRACLEER [Concomitant]
     Active Substance: BOSENTAN
  11. ADCIRCA [Concomitant]
     Active Substance: TADALAFIL
  12. NIFEDICAL XL [Concomitant]
     Active Substance: NIFEDIPINE
  13. PREDNISONE. [Concomitant]
     Active Substance: PREDNISONE
  14. TADALAFIL. [Concomitant]
     Active Substance: TADALAFIL
  15. OSTEO BI-FLEX [CHONDROITIN SULFATE;GLUCOSAMINE HYDROCHLORIDE] [Concomitant]
  16. VITAMIN B12 [Concomitant]
     Active Substance: CYANOCOBALAMIN
  17. WARFARIN [Concomitant]
     Active Substance: WARFARIN
  18. FLUTICASONE. [Concomitant]
     Active Substance: FLUTICASONE

REACTIONS (1)
  - Atrial fibrillation [Not Recovered/Not Resolved]

NARRATIVE: CASE EVENT DATE: 201909
